FAERS Safety Report 6683212-6 (Version None)
Quarter: 2010Q2

REPORT INFORMATION
  Report Type: 
  Country: None (occurrence: None)
  Receive Date: 20100415
  Receipt Date: 20100405
  Transmission Date: 20101027
  Serious: Yes (Hospitalization)
  Sender: FDA-Public Use
  Company Number: US-CELGENEUS-163-20785-10040386

PATIENT
  Sex: Female

DRUGS (4)
  1. THALOMID [Suspect]
     Indication: MULTIPLE MYELOMA
     Route: 048
     Dates: start: 20080418
  2. THALOMID [Suspect]
     Route: 048
     Dates: start: 20080301
  3. THALOMID [Suspect]
     Route: 048
     Dates: start: 20080501, end: 20090101
  4. THALOMID [Suspect]
     Route: 048
     Dates: start: 20091101

REACTIONS (1)
  - HIP FRACTURE [None]
